FAERS Safety Report 4718127-3 (Version None)
Quarter: 2005Q3

REPORT INFORMATION
  Report Type: 
  Country: None (occurrence: None)
  Receive Date: 20050718
  Receipt Date: 20050718
  Transmission Date: 20060218
  Serious: No
  Sender: FDA-Public Use
  Company Number: None

PATIENT
  Age: 62 Year
  Sex: Female
  Weight: 110.6777 kg

DRUGS (3)
  1. FENTANYL [Suspect]
     Indication: ABDOMINAL HERNIA
     Dosage: 25 MCG/HR 1 PATCH Q 72 H TRANSDERMAL
     Route: 062
     Dates: start: 20050517, end: 20050616
  2. FENTANYL [Suspect]
     Indication: HERNIA REPAIR
     Dosage: 25 MCG/HR 1 PATCH Q 72 H TRANSDERMAL
     Route: 062
     Dates: start: 20050517, end: 20050616
  3. FENTANYL [Suspect]
     Indication: INTERVERTEBRAL DISC PROTRUSION
     Dosage: 25 MCG/HR 1 PATCH Q 72 H TRANSDERMAL
     Route: 062
     Dates: start: 20050517, end: 20050616

REACTIONS (2)
  - DRUG EFFECT DECREASED [None]
  - PHARMACEUTICAL PRODUCT COMPLAINT [None]
